FAERS Safety Report 10143803 (Version 1)
Quarter: 2014Q2

REPORT INFORMATION
  Report Type: Spontaneous
  Country: US (occurrence: US)
  Receive Date: 20140430
  Receipt Date: 20140430
  Transmission Date: 20141212
  Serious: No
  Sender: FDA-Public Use
  Company Number: US-009507513-1404USA014850

PATIENT
  Sex: Male

DRUGS (1)
  1. NASONEX [Suspect]
     Dosage: 2 SPRAYS IN EACH NOSTRIL ONCE A DAY
     Route: 045

REACTIONS (3)
  - Overdose [Unknown]
  - No adverse event [Unknown]
  - Product quality issue [Unknown]
